FAERS Safety Report 11656429 (Version 6)
Quarter: 2017Q4

REPORT INFORMATION
  Report Type: Report from Study
  Country: JP (occurrence: JP)
  Receive Date: 20151023
  Receipt Date: 20171019
  Transmission Date: 20180320
  Serious: Yes (Death)
  Sender: FDA-Public Use
  Company Number: JP-EISAI MEDICAL RESEARCH-EC-2015-009987

PATIENT
  Age: 78 Year
  Sex: Female
  Weight: 38 kg

DRUGS (11)
  1. LOXONIN [Concomitant]
     Active Substance: LOXOPROFEN SODIUM
  2. LEVOTHYROXINE SODIUM HYDRATE [Concomitant]
     Active Substance: LEVOTHYROXINE SODIUM
  3. COLONEL [Concomitant]
     Active Substance: CALCIUM POLYCARBOPHIL
  4. LANSOPRAZOLE. [Concomitant]
     Active Substance: LANSOPRAZOLE
  5. LENVIMA [Suspect]
     Active Substance: LENVATINIB
     Route: 048
     Dates: start: 20150818, end: 20150818
  6. THYRADIN [Concomitant]
     Active Substance: LEVOTHYROXINE
  7. OXYCONTIN [Concomitant]
     Active Substance: OXYCODONE HYDROCHLORIDE
  8. LIPITOR [Concomitant]
     Active Substance: ATORVASTATIN CALCIUM
  9. SENNOSIDE [Concomitant]
     Active Substance: SENNOSIDES
  10. LENVIMA [Suspect]
     Active Substance: LENVATINIB
     Indication: ANAPLASTIC THYROID CANCER
     Route: 048
     Dates: start: 20150803, end: 20150803
  11. ALESION [Concomitant]
     Active Substance: EPINASTINE HYDROCHLORIDE

REACTIONS (1)
  - Small intestinal perforation [Fatal]

NARRATIVE: CASE EVENT DATE: 20150819
